FAERS Safety Report 20307449 (Version 1)
Quarter: 2022Q1

REPORT INFORMATION
  Report Type: Spontaneous
  Country: FR (occurrence: FR)
  Receive Date: 20220107
  Receipt Date: 20220107
  Transmission Date: 20220423
  Serious: Yes (Hospitalization, Other)
  Sender: FDA-Public Use
  Company Number: FR-AFSSAPS-MP20216877

PATIENT
  Age: 80 Year
  Sex: Male
  Weight: 58.4 kg

DRUGS (29)
  1. DULOXETINE [Suspect]
     Active Substance: DULOXETINE
     Indication: Product used for unknown indication
     Dosage: UNK
     Route: 065
     Dates: start: 20210716, end: 20210817
  2. GABAPENTIN [Suspect]
     Active Substance: GABAPENTIN
     Indication: Product used for unknown indication
     Dosage: 400 MILLIGRAM, ONCE A DAY
     Route: 065
     Dates: start: 20210817, end: 20210819
  3. GABAPENTIN [Suspect]
     Active Substance: GABAPENTIN
     Dosage: 100 MILLIGRAM, ONCE A DAY
     Route: 065
     Dates: start: 20210820, end: 20210820
  4. MOXIFLOXACIN [Suspect]
     Active Substance: MOXIFLOXACIN
     Indication: Wound infection
     Dosage: UNK
     Route: 065
     Dates: start: 20210811, end: 20210819
  5. RIFAMPIN [Suspect]
     Active Substance: RIFAMPIN
     Indication: Wound infection
     Dosage: UNK
     Route: 065
     Dates: start: 20210811, end: 20210817
  6. MORPHINE [Suspect]
     Active Substance: MORPHINE
     Indication: Product used for unknown indication
     Dosage: 10 MILLIGRAM, TWO TIMES A DAY
     Route: 048
     Dates: start: 20210814, end: 20210816
  7. MORPHINE [Suspect]
     Active Substance: MORPHINE
     Dosage: UNK (20 MG IN THE MORNING, 10 MG IN THE EVENING)
     Route: 048
     Dates: start: 20210816, end: 20210817
  8. MORPHINE [Suspect]
     Active Substance: MORPHINE
     Dosage: 10 MILLIGRAM, ONCE A DAY
     Route: 048
     Dates: start: 20210817, end: 20210820
  9. NEFOPAM HYDROCHLORIDE [Suspect]
     Active Substance: NEFOPAM HYDROCHLORIDE
     Indication: Product used for unknown indication
     Dosage: UNK
     Route: 065
     Dates: start: 20210814, end: 20210820
  10. CLINDAMYCIN [Suspect]
     Active Substance: CLINDAMYCIN
     Indication: Wound infection
     Dosage: 600 MILLIGRAM, FOUR TIMES/DAY
     Route: 048
     Dates: start: 20210817, end: 20210822
  11. CLINDAMYCIN [Suspect]
     Active Substance: CLINDAMYCIN
     Dosage: 600 MILLIGRAM, TWO TIMES A DAY
     Route: 048
     Dates: start: 20210817, end: 20210825
  12. CLINDAMYCIN [Suspect]
     Active Substance: CLINDAMYCIN
     Dosage: 600 MILLIGRAM, TWO TIMES A DAY
     Route: 041
     Dates: start: 20210824, end: 20210830
  13. ONDANSETRON [Concomitant]
     Active Substance: ONDANSETRON
     Indication: Product used for unknown indication
     Dosage: 8 MILLIGRAM, ONCE A DAY
     Route: 048
     Dates: start: 20210815, end: 20210830
  14. TAZOBACTAM [Concomitant]
     Active Substance: TAZOBACTAM
     Indication: Wound infection
     Dosage: UNK (8 HOUR)
     Route: 041
     Dates: start: 20210819
  15. OXYCODONE HYDROCHLORIDE [Concomitant]
     Active Substance: OXYCODONE HYDROCHLORIDE
     Indication: Product used for unknown indication
     Dosage: 1 MILLIGRAM
     Route: 041
     Dates: start: 20210820, end: 20210821
  16. OXYCODONE HYDROCHLORIDE [Concomitant]
     Active Substance: OXYCODONE HYDROCHLORIDE
     Dosage: 9.6 MILLIGRAM, 1 TOTAL
     Route: 041
     Dates: start: 20210821, end: 20210822
  17. OXYCODONE HYDROCHLORIDE [Concomitant]
     Active Substance: OXYCODONE HYDROCHLORIDE
     Dosage: 14.4 MILLIGRAM, ONCE A DAY
     Route: 041
     Dates: start: 20210822, end: 20210827
  18. OXYCODONE HYDROCHLORIDE [Concomitant]
     Active Substance: OXYCODONE HYDROCHLORIDE
     Dosage: 33.6 MILLIGRAM, ONCE A DAY
     Route: 041
     Dates: start: 20210827, end: 20210831
  19. OXYCODONE HYDROCHLORIDE [Concomitant]
     Active Substance: OXYCODONE HYDROCHLORIDE
     Dosage: 38.4 MILLIGRAM, ONCE A DAY
     Route: 041
     Dates: start: 20210831, end: 20210903
  20. OXYCODONE HYDROCHLORIDE [Concomitant]
     Active Substance: OXYCODONE HYDROCHLORIDE
     Dosage: 48 MILLIGRAM, ONCE A DAY
     Route: 041
     Dates: start: 20210903, end: 20210906
  21. PIPERACILLIN SODIUM [Concomitant]
     Active Substance: PIPERACILLIN SODIUM
     Indication: Wound infection
     Dosage: 4 GRAM, 3 TIMES A DAY
     Route: 041
     Dates: start: 20210819
  22. URAPIDIL [Concomitant]
     Active Substance: URAPIDIL
     Indication: Product used for unknown indication
     Dosage: 60 MILLIGRAM, ONCE A DAY (LP FORM)
     Route: 048
     Dates: end: 20210822
  23. LERCANIDIPINE HYDROCHLORIDE [Concomitant]
     Active Substance: LERCANIDIPINE HYDROCHLORIDE
     Indication: Product used for unknown indication
     Dosage: 20 MILLIGRAM, ONCE A DAY
     Route: 048
     Dates: end: 20210822
  24. ASPIRIN [Concomitant]
     Active Substance: ASPIRIN
     Indication: Product used for unknown indication
     Dosage: 100 MILLIGRAM, ONCE A DAY
     Route: 048
     Dates: end: 20210822
  25. MIDAZOLAM [Concomitant]
     Active Substance: MIDAZOLAM
     Indication: Product used for unknown indication
     Dosage: 2.4 MILLIGRAM, ONCE A DAY
     Route: 041
     Dates: start: 20210821
  26. MIDAZOLAM [Concomitant]
     Active Substance: MIDAZOLAM
     Dosage: 7 MILLIGRAM, ONCE A DAY
     Route: 041
     Dates: start: 20210822
  27. MIDAZOLAM [Concomitant]
     Active Substance: MIDAZOLAM
     Dosage: 9.4 MILLIGRAM, ONCE A DAY
     Route: 041
     Dates: start: 20210827
  28. MIDAZOLAM [Concomitant]
     Active Substance: MIDAZOLAM
     Dosage: 18.6 MILLIGRAM, ONCE A DAY
     Route: 041
     Dates: start: 20210830
  29. MIDAZOLAM [Concomitant]
     Active Substance: MIDAZOLAM
     Dosage: 24 MILLIGRAM, ONCE A DAY
     Route: 041
     Dates: start: 20210902

REACTIONS (1)
  - Cholestatic liver injury [Recovering/Resolving]

NARRATIVE: CASE EVENT DATE: 20210823
